FAERS Safety Report 8577902-8 (Version None)
Quarter: 2012Q3

REPORT INFORMATION
  Report Type: 
  Country: None (occurrence: None)
  Receive Date: 20120808
  Receipt Date: 20120730
  Transmission Date: 20120928
  Serious: No
  Sender: FDA-Public Use
  Company Number: US-BIOGENIDEC-2012BI026229

PATIENT
  Sex: Female

DRUGS (5)
  1. AVONEX [Suspect]
     Route: 030
     Dates: start: 20120621
  2. AVONEX [Suspect]
     Route: 030
     Dates: start: 20040101
  3. AVONEX [Suspect]
     Route: 030
     Dates: start: 20030101, end: 20040101
  4. AVONEX [Suspect]
     Route: 030
     Dates: start: 20120621
  5. AVONEX [Suspect]
     Indication: MULTIPLE SCLEROSIS
     Route: 030
     Dates: start: 19981215, end: 20030101

REACTIONS (9)
  - UNDERDOSE [None]
  - ASTHENIA [None]
  - DRUG DOSE OMISSION [None]
  - MULTIPLE SCLEROSIS RELAPSE [None]
  - FATIGUE [None]
  - NEEDLE ISSUE [None]
  - INJECTION SITE PAIN [None]
  - HEADACHE [None]
  - MUSCULAR WEAKNESS [None]
